FAERS Safety Report 25018159 (Version 2)
Quarter: 2025Q1

REPORT INFORMATION
  Report Type: Spontaneous
  Country: US (occurrence: US)
  Receive Date: 20250227
  Receipt Date: 20250318
  Transmission Date: 20250409
  Serious: Yes (Other)
  Sender: RADIUS PHARM
  Company Number: US-RADIUS HEALTH INC.-2025US001582

PATIENT
  Sex: Female

DRUGS (2)
  1. TYMLOS [Suspect]
     Active Substance: ABALOPARATIDE
     Indication: Senile osteoporosis
     Route: 058
     Dates: start: 2025
  2. TYMLOS [Suspect]
     Active Substance: ABALOPARATIDE
     Route: 058
     Dates: start: 2025, end: 20250305

REACTIONS (6)
  - Spinal fracture [Unknown]
  - Intentional dose omission [Unknown]
  - Feeling abnormal [Unknown]
  - Heart rate increased [Unknown]
  - Vomiting [Unknown]
  - Tachycardia [Unknown]
